FAERS Safety Report 18195947 (Version 1)
Quarter: 2020Q3

REPORT INFORMATION
  Report Type: Spontaneous
  Country: GB (occurrence: GB)
  Receive Date: 20200826
  Receipt Date: 20200826
  Transmission Date: 20201103
  Serious: Yes (Other)
  Sender: FDA-Public Use
  Company Number: GB-TEVA-2020-GB-1819620

PATIENT
  Age: 17 Year
  Sex: Female
  Weight: 56 kg

DRUGS (5)
  1. RIGEVIDON [Concomitant]
     Dosage: 1 DOSAGE FORMS, 1 A DAY AT THE SAME TIME DAILY FOR 21 DAYS THEN...
     Dates: start: 20181027, end: 20200505
  2. AMOXICILLIN. [Suspect]
     Active Substance: AMOXICILLIN
     Dosage: 1500MG
     Dates: start: 20200720
  3. SERTRALINE [Concomitant]
     Active Substance: SERTRALINE HYDROCHLORIDE
     Dosage: 1 DOSAGE FORMS
     Dates: start: 20190322
  4. OMEPRAZOLE. [Concomitant]
     Active Substance: OMEPRAZOLE
     Dosage: 1 DOSAGE FORMS
     Dates: start: 20200721
  5. CYCLIZINE [Concomitant]
     Active Substance: CYCLIZINE
     Dosage: 3 DOSAGE FORMS DAILY; THREE TIMES A DAY
     Dates: start: 20200721

REACTIONS (2)
  - Nausea [Recovered/Resolved]
  - Abdominal pain [Recovered/Resolved]

NARRATIVE: CASE EVENT DATE: 20200729
